FAERS Safety Report 19440521 (Version 3)
Quarter: 2022Q2

REPORT INFORMATION
  Report Type: Report from Study
  Country: FR (occurrence: FR)
  Receive Date: 20210621
  Receipt Date: 20220512
  Transmission Date: 20220721
  Serious: Yes (Death, Hospitalization, Other)
  Sender: FDA-Public Use
  Company Number: FR-BRISTOL-MYERS SQUIBB COMPANY-BMS-2021-057311

PATIENT
  Age: 66 Year
  Sex: Female

DRUGS (1)
  1. NIVOLUMAB [Suspect]
     Active Substance: NIVOLUMAB
     Indication: Non-small cell lung cancer
     Dosage: 240 MILLIGRAM
     Route: 042
     Dates: start: 20210209, end: 20210209

REACTIONS (4)
  - Respiratory distress [Not Recovered/Not Resolved]
  - Respiratory depression [Fatal]
  - Malignant neoplasm progression [Fatal]
  - Bronchitis [Fatal]

NARRATIVE: CASE EVENT DATE: 20210217
